FAERS Safety Report 21939171 (Version 1)
Quarter: 2023Q1

REPORT INFORMATION
  Report Type: Spontaneous
  Country: JP (occurrence: JP)
  Receive Date: 20230201
  Receipt Date: 20230201
  Transmission Date: 20230418
  Serious: Yes (Hospitalization, Disabling, Other)
  Sender: FDA-Public Use
  Company Number: JP-TAKEDA-2022TJP071118

PATIENT
  Age: 65 Year
  Sex: Male

DRUGS (1)
  1. CABOMETYX [Suspect]
     Active Substance: CABOZANTINIB S-MALATE
     Indication: Renal cell carcinoma recurrent
     Dosage: 40 MG, QD
     Route: 048
     Dates: start: 20220623, end: 20220729

REACTIONS (2)
  - Intestinal perforation [Not Recovered/Not Resolved]
  - Gastric perforation [Unknown]

NARRATIVE: CASE EVENT DATE: 20220729
